FAERS Safety Report 10363126 (Version 2)
Quarter: 2014Q3

REPORT INFORMATION
  Report Type: Spontaneous
  Country: US (occurrence: US)
  Receive Date: 20140805
  Receipt Date: 20140805
  Transmission Date: 20150326
  Serious: Yes (Death, Life-Threatening, Other)
  Sender: FDA-Public Use
  Company Number: US-RB PHARMACEUTICALS LIMITED-RB-45309-2012

PATIENT

DRUGS (2)
  1. ALLERGY MEDICATION [Suspect]
     Active Substance: DIPHENHYDRAMINE HYDROCHLORIDE
     Indication: MULTIPLE ALLERGIES
     Dosage: UNKNOWN DOSING DETAILS
     Route: 065
     Dates: start: 2012, end: 2012
  2. SUBOXONE [Suspect]
     Active Substance: BUPRENORPHINE HYDROCHLORIDE\NALOXONE HYDROCHLORIDE
     Dosage: UNKNOWN DOSING DETAILS
     Route: 065
     Dates: start: 201205, end: 201205

REACTIONS (7)
  - Hyperkeratosis [None]
  - Accidental exposure to product [Fatal]
  - Somnolence [Unknown]
  - Toxicity to various agents [Fatal]
  - Malaise [Unknown]
  - Erythema [None]
  - Unresponsive to stimuli [Unknown]

NARRATIVE: CASE EVENT DATE: 201205
